FAERS Safety Report 20722073 (Version 1)
Quarter: 2022Q2

REPORT INFORMATION
  Report Type: Spontaneous
  Country: US (occurrence: US)
  Receive Date: 20220418
  Receipt Date: 20220418
  Transmission Date: 20220721
  Serious: No
  Sender: FDA-Public Use
  Company Number: US-TEVA-2022-US-2021014

PATIENT
  Age: 9 Year
  Sex: Male

DRUGS (1)
  1. CLONIDINE HYDROCHLORIDE [Suspect]
     Active Substance: CLONIDINE HYDROCHLORIDE
     Dosage: .1 MILLIGRAM DAILY; 24HR
     Route: 062

REACTIONS (3)
  - Application site rash [Not Recovered/Not Resolved]
  - Therapeutic response unexpected [Unknown]
  - Product use in unapproved indication [Unknown]
